FAERS Safety Report 6257952-7 (Version None)
Quarter: 2009Q3

REPORT INFORMATION
  Report Type: 
  Country: None (occurrence: None)
  Receive Date: 20090707
  Receipt Date: 20090626
  Transmission Date: 20100115
  Serious: Yes (Hospitalization)
  Sender: FDA-Public Use
  Company Number: JP-ASTRAZENECA-2009SE01481

PATIENT
  Age: 90 Year
  Sex: Male

DRUGS (5)
  1. ECARD COMBINATION [Suspect]
     Indication: HYPERTENSION
     Route: 048
     Dates: start: 20090319, end: 20090408
  2. LASIX [Concomitant]
     Indication: CARDIAC FAILURE
     Route: 065
  3. OMEPRAL [Concomitant]
     Indication: REFLUX OESOPHAGITIS
     Route: 065
  4. ISOSORBIDE [Concomitant]
     Indication: CARDIAC FAILURE
     Route: 062
  5. LANIRAPID [Concomitant]
     Indication: CARDIAC FAILURE
     Route: 048

REACTIONS (2)
  - CARDIAC FAILURE [None]
  - HYPERURICAEMIA [None]
